FAERS Safety Report 10077620 (Version 2)
Quarter: 2014Q2

REPORT INFORMATION
  Report Type: Spontaneous
  Country: US (occurrence: US)
  Receive Date: 20140414
  Receipt Date: 20140414
  Transmission Date: 20141212
  Serious: No
  Sender: FDA-Public Use
  Company Number: US-BANPHARM-20141991

PATIENT
  Age: 78 Year
  Sex: Female
  Weight: 71.21 kg

DRUGS (5)
  1. ALEVE LIQUID GELS 220 MG [Suspect]
     Indication: JOINT STIFFNESS
     Dosage: 1 DF, QD,
     Route: 048
     Dates: start: 201312
  2. ALEVE TABLETS [Suspect]
     Indication: JOINT STIFFNESS
     Dosage: 2 DF, ONCE DAILY,
     Dates: end: 201312
  3. TRAMADOL [Concomitant]
  4. OSTEO BIFLEX [Concomitant]
  5. FISH OIL [Concomitant]

REACTIONS (1)
  - Drug effect incomplete [Unknown]
